FAERS Safety Report 18586538 (Version 8)
Quarter: 2021Q4

REPORT INFORMATION
  Report Type: Report from Study
  Country: CA (occurrence: CA)
  Receive Date: 20201207
  Receipt Date: 20211224
  Transmission Date: 20220303
  Serious: Yes (Other)
  Sender: FDA-Public Use
  Company Number: CA-TAKEDA-2020TUS055118

PATIENT
  Age: 56 Year
  Sex: Male

DRUGS (9)
  1. VEDOLIZUMAB [Suspect]
     Active Substance: VEDOLIZUMAB
     Indication: Colitis ulcerative
     Dosage: 300 MILLIGRAM
     Route: 042
     Dates: start: 20190212
  2. VEDOLIZUMAB [Suspect]
     Active Substance: VEDOLIZUMAB
     Dosage: 300 MILLIGRAM, Q4WEEKS
     Route: 042
     Dates: start: 20201230
  3. VEDOLIZUMAB [Suspect]
     Active Substance: VEDOLIZUMAB
     Dosage: 300 MILLIGRAM, Q4WEEKS
     Route: 042
  4. VEDOLIZUMAB [Suspect]
     Active Substance: VEDOLIZUMAB
     Dosage: 300 MILLIGRAM, Q4WEEKS
     Route: 042
  5. VEDOLIZUMAB [Suspect]
     Active Substance: VEDOLIZUMAB
     Dosage: 300 MILLIGRAM, Q4WEEKS
     Route: 042
  6. VEDOLIZUMAB [Suspect]
     Active Substance: VEDOLIZUMAB
     Dosage: 300 MILLIGRAM, Q4WEEKS
     Route: 042
     Dates: end: 20211207
  7. AZATHIOPRINE [Concomitant]
     Active Substance: AZATHIOPRINE
     Dosage: 150 MILLIGRAM
  8. PREDNISONE [Concomitant]
     Active Substance: PREDNISONE
     Dosage: 30 MILLIGRAM
  9. Salofalk [Concomitant]
     Dosage: UNK

REACTIONS (7)
  - Haematochezia [Unknown]
  - Diarrhoea [Unknown]
  - Frequent bowel movements [Unknown]
  - Defaecation urgency [Unknown]
  - Abdominal pain [Unknown]
  - Drug ineffective [Unknown]
  - Off label use [Unknown]

NARRATIVE: CASE EVENT DATE: 20201230
